FAERS Safety Report 12952038 (Version 1)
Quarter: 2016Q4

REPORT INFORMATION
  Report Type: Spontaneous
  Country: US (occurrence: US)
  Receive Date: 20161117
  Receipt Date: 20161117
  Transmission Date: 20170207
  Serious: No
  Sender: FDA-Public Use
  Company Number: US-SA-2016SA190884

PATIENT
  Age: 67 Year
  Sex: Male

DRUGS (6)
  1. TOUJEO [Suspect]
     Active Substance: INSULIN GLARGINE
     Indication: TYPE 2 DIABETES MELLITUS
     Dosage: DOSE:18 UNIT(S)
     Route: 065
     Dates: start: 201610
  2. SOLOSTAR [Concomitant]
     Active Substance: DEVICE
     Dates: start: 20161014
  3. SOLOSTAR [Concomitant]
     Active Substance: DEVICE
     Dates: start: 201610
  4. TOUJEO [Suspect]
     Active Substance: INSULIN GLARGINE
     Indication: TYPE 2 DIABETES MELLITUS
     Dosage: DOSE:15 UNIT(S)
     Route: 065
     Dates: start: 20161004
  5. SOLOSTAR [Concomitant]
     Active Substance: DEVICE
     Dates: start: 20161004
  6. TOUJEO [Suspect]
     Active Substance: INSULIN GLARGINE
     Indication: TYPE 2 DIABETES MELLITUS
     Dosage: HE TOOK A ^BOOST^ OF 8 UNITS TODAY
     Route: 065
     Dates: start: 20161014

REACTIONS (3)
  - Blood glucose increased [Unknown]
  - Product use issue [Unknown]
  - Spinal disorder [Unknown]
